FAERS Safety Report 7334120-9 (Version None)
Quarter: 2011Q1

REPORT INFORMATION
  Report Type: 
  Country: None (occurrence: None)
  Receive Date: 20110302
  Receipt Date: 20110302
  Transmission Date: 20110831
  Serious: Yes (Other)
  Sender: FDA-Public Use
  Company Number: None

PATIENT
  Age: 55 Year
  Sex: Male
  Weight: 79.3795 kg

DRUGS (1)
  1. LEVAQUIN [Suspect]
     Indication: SINUSITIS
     Dosage: ONCE A DAY PO
     Route: 048
     Dates: start: 20101228, end: 20110106

REACTIONS (3)
  - TENDON PAIN [None]
  - PAIN IN EXTREMITY [None]
  - LIGAMENT PAIN [None]
